FAERS Safety Report 20500313 (Version 5)
Quarter: 2023Q1

REPORT INFORMATION
  Report Type: Report from Study
  Country: AT (occurrence: AT)
  Receive Date: 20220222
  Receipt Date: 20230113
  Transmission Date: 20230417
  Serious: Yes (Hospitalization)
  Sender: FDA-Public Use
  Company Number: AT-ABBVIE-22K-009-4286576-00

PATIENT
  Age: 24 Year
  Sex: Female
  Weight: 67 kg

DRUGS (30)
  1. RINVOQ [Suspect]
     Active Substance: UPADACITINIB
     Indication: Rheumatoid arthritis
     Dosage: DAILY
     Route: 048
     Dates: start: 20210727, end: 20220130
  2. RINVOQ [Suspect]
     Active Substance: UPADACITINIB
     Indication: Rheumatoid arthritis
     Route: 048
     Dates: start: 20220223
  3. COVID-19 VACCINE [Concomitant]
     Indication: COVID-19 immunisation
     Dosage: FIRST DOSE
     Route: 030
     Dates: start: 20211028, end: 20211028
  4. COVID-19 VACCINE [Concomitant]
     Indication: COVID-19 immunisation
     Dosage: SECOND DOSE
     Route: 030
     Dates: start: 20211118, end: 20211118
  5. ACYCLOVIR [Concomitant]
     Active Substance: ACYCLOVIR
     Indication: Herpes ophthalmic
     Dosage: TIME INTERVAL: 0.33333333 DAYS
     Route: 042
     Dates: start: 20220201, end: 20220205
  6. ACYCLOVIR [Concomitant]
     Active Substance: ACYCLOVIR
     Indication: Herpes ophthalmic
     Route: 042
     Dates: start: 20220201, end: 20220205
  7. VALACYCLOVIR HYDROCHLORIDE [Concomitant]
     Active Substance: VALACYCLOVIR HYDROCHLORIDE
     Indication: Herpes ophthalmic
     Dosage: TIME INTERVAL: 0.33333333 DAYS
     Route: 048
     Dates: start: 20220130, end: 20220207
  8. VALACYCLOVIR HYDROCHLORIDE [Concomitant]
     Active Substance: VALACYCLOVIR HYDROCHLORIDE
     Indication: Herpes ophthalmic
     Dosage: ANTIVIRAL THERAPY
     Route: 048
     Dates: start: 20220130, end: 20220207
  9. SARS.CoV-2 [Concomitant]
     Indication: COVID-19 immunisation
     Route: 030
     Dates: start: 20211118
  10. SARS.CoV-2 [Concomitant]
     Indication: COVID-19 immunisation
     Route: 030
     Dates: start: 20211028
  11. METHOTREXATE [Concomitant]
     Active Substance: METHOTREXATE
     Indication: Rheumatoid arthritis
     Dosage: WEEKLY
     Route: 058
     Dates: start: 202009
  12. METHOTREXATE [Concomitant]
     Active Substance: METHOTREXATE
     Indication: Rheumatoid arthritis
     Dosage: ONCE WEEKLY
     Route: 058
     Dates: start: 20210726, end: 20210927
  13. METHOTREXATE [Concomitant]
     Active Substance: METHOTREXATE
     Indication: Rheumatoid arthritis
     Dosage: ONCE WEEKLY
     Route: 058
     Dates: start: 20210928, end: 20220630
  14. METHOTREXATE [Concomitant]
     Active Substance: METHOTREXATE
     Indication: Rheumatoid arthritis
     Dosage: ONCE WEEKLY
     Route: 058
     Dates: start: 20220701
  15. METHYLPREDNISOLONE [Concomitant]
     Active Substance: METHYLPREDNISOLONE
     Indication: Ophthalmic herpes zoster
     Dosage: TAPERING DOSE?FORM STRENGTH: 60 MG
     Route: 042
     Dates: start: 20220201, end: 20220205
  16. METHYLPREDNISOLONE [Concomitant]
     Active Substance: METHYLPREDNISOLONE
     Indication: Ophthalmic herpes zoster
     Dosage: FORM STRENGTH: 60 MG
     Route: 042
     Dates: start: 20220201, end: 20220205
  17. FOLIC ACID [Concomitant]
     Active Substance: FOLIC ACID
     Indication: Prophylaxis
     Dosage: WEEKLY
     Route: 048
     Dates: start: 20210810
  18. ACETAMINOPHEN [Concomitant]
     Active Substance: ACETAMINOPHEN
     Indication: COVID-19
     Dosage: ONCE
     Route: 048
     Dates: start: 20220509, end: 20220509
  19. CORTISONE [Concomitant]
     Active Substance: CORTISONE
     Indication: Rheumatoid arthritis
     Route: 048
     Dates: start: 20220215, end: 20220216
  20. CORTISONE [Concomitant]
     Active Substance: CORTISONE
     Indication: Rheumatoid arthritis
     Route: 048
     Dates: start: 20220217, end: 20220219
  21. CORTISONE [Concomitant]
     Active Substance: CORTISONE
     Indication: Rheumatoid arthritis
     Route: 048
     Dates: start: 20220220, end: 20220224
  22. IVY EXTRACT [Concomitant]
     Active Substance: IVY EXTRACT
     Indication: Cough
     Dosage: TIME INTERVAL: 0.33333333 DAYS
     Route: 048
     Dates: start: 202212, end: 202212
  23. ACETAMINOPHEN\CAFFEINE\PROPYPHENAZONE [Concomitant]
     Active Substance: ACETAMINOPHEN\CAFFEINE\PROPYPHENAZONE
     Indication: Pain
  24. ACETAMINOPHEN [Concomitant]
     Active Substance: ACETAMINOPHEN
     Indication: Pain
     Route: 042
  25. ACETAMINOPHEN [Concomitant]
     Active Substance: ACETAMINOPHEN
     Indication: Pain
     Route: 042
  26. HYALURONATE SODIUM\TREHALOSE [Concomitant]
     Active Substance: HYALURONATE SODIUM\TREHALOSE
     Indication: Adverse event
  27. Silaxx forte [Concomitant]
     Indication: Cough
     Route: 048
     Dates: start: 202212, end: 202212
  28. Seractil forte [Concomitant]
     Indication: Intercostal neuralgia
     Route: 048
     Dates: start: 20230109
  29. Seractil forte [Concomitant]
     Indication: Intercostal neuralgia
     Route: 048
     Dates: start: 20230106, end: 20230108
  30. NAPROXEN [Concomitant]
     Active Substance: NAPROXEN
     Indication: Intercostal neuralgia
     Route: 048
     Dates: start: 20230103, end: 20230105

REACTIONS (7)
  - Herpes ophthalmic [Recovered/Resolved]
  - Pain [Unknown]
  - Swelling of eyelid [Unknown]
  - Scab [Recovering/Resolving]
  - COVID-19 [Recovered/Resolved]
  - Cough [Recovered/Resolved]
  - Intercostal neuralgia [Recovering/Resolving]

NARRATIVE: CASE EVENT DATE: 20220126
